FAERS Safety Report 9215433 (Version 1)
Quarter: 2013Q2

REPORT INFORMATION
  Report Type: Report from Study
  Country: NZ (occurrence: NZ)
  Receive Date: 20130405
  Receipt Date: 20130405
  Transmission Date: 20140414
  Serious: Yes (Hospitalization)
  Sender: FDA-Public Use
  Company Number: NZ-AMGEN-US375402

PATIENT
  Age: 75 Year
  Sex: Male

DRUGS (7)
  1. DENOSUMAB [Suspect]
     Indication: PROSTATE CANCER
     Dosage: UNK UNK, QMO
     Route: 058
     Dates: start: 20061006
  2. OMEPRAZOLE [Concomitant]
     Dosage: 20 MG, QD
     Route: 048
     Dates: start: 200412
  3. ASPIRIN [Concomitant]
     Dosage: 150 MG, QD
     Route: 048
     Dates: start: 200601
  4. DIAZEPAM [Concomitant]
     Dosage: 5 MG, PRN
     Route: 048
     Dates: start: 2004
  5. METOPROLOL TARTRATE [Concomitant]
     Dosage: 47.5 MG, QD
     Route: 048
     Dates: start: 200607
  6. CALCIUM [Concomitant]
     Dosage: 500 MG, QD
     Route: 048
     Dates: start: 20061007
  7. ERGOCALCIFEROL [Concomitant]
     Dosage: 200 IU, QD
     Dates: start: 20061007

REACTIONS (1)
  - Osteoarthritis [Recovered/Resolved]
